FAERS Safety Report 24575759 (Version 1)
Quarter: 2024Q4

REPORT INFORMATION
  Report Type: Spontaneous
  Country: GB (occurrence: GB)
  Receive Date: 20241104
  Receipt Date: 20241104
  Transmission Date: 20250115
  Serious: Yes (Hospitalization, Other)
  Sender: MYLAN
  Company Number: None

PATIENT
  Age: 81 Year
  Sex: Male

DRUGS (15)
  1. APIXABAN [Suspect]
     Active Substance: APIXABAN
     Indication: Product used for unknown indication
     Dosage: 2.5 MILLIGRAM, BID (2.5 MG TABLETS ONE TO BE TAKEN TWICE A DAY - NOT PRESCRIBED, INTERACTION WITH PO
     Route: 065
  2. POSACONAZOLE [Suspect]
     Active Substance: POSACONAZOLE
     Indication: Product used for unknown indication
     Dosage: UNK
     Route: 065
  3. FERROUS SULFATE [Concomitant]
     Active Substance: FERROUS SULFATE
     Dosage: 200 MILLIGRAM, QD ( (200 MG TABLETS ONE TO BE TAKEN EACH DAY AT LUNCHTIME))
     Route: 065
  4. NICORANDIL [Concomitant]
     Active Substance: NICORANDIL
     Dosage: 20 MILLIGRAM, BID (20 MG TABLETS ONE TO BE TAKEN TWICE A DAY)
     Route: 065
  5. LOSARTAN [Concomitant]
     Active Substance: LOSARTAN
     Dosage: 25 MILLIGRAM, QD (25 MG TABLETS ONE TO BE TAKEN EACH DAY)
     Route: 065
  6. LINAGLIPTIN [Concomitant]
     Active Substance: LINAGLIPTIN
     Dosage: 5 MILLIGRAM, QD (5 MG TABLETS ONE TO BE TAKEN EACH DAY)
     Route: 065
  7. GLICLAZIDE [Concomitant]
     Active Substance: GLICLAZIDE
     Dosage: 40 MILLIGRAM, PM (40 MG TABLETS ONE TO BE TAKEN WITH EVENING MEAL)
     Route: 065
  8. TAMSULOSIN [Concomitant]
     Active Substance: TAMSULOSIN
     Dosage: 400 MICROGRAM, QD (400 MICROGRAM MODIFIED-RELEASE CAPSULES ONE TO BE TAKEN EACH DAY)
     Route: 065
  9. BISOPROLOL [Concomitant]
     Active Substance: BISOPROLOL\BISOPROLOL FUMARATE
     Dosage: 1.25 MILLIGRAM, QD (1.25 MG TABLETS ONE TO BE TAKEN EACH DAY)
     Route: 065
     Dates: end: 20241023
  10. BISOPROLOL [Concomitant]
     Active Substance: BISOPROLOL\BISOPROLOL FUMARATE
     Dosage: 2.5 MILLIGRAM, QD (TABLETS ONE TO BE TAKEN EACH DAY)
     Route: 065
  11. ATORVASTATIN [Concomitant]
     Active Substance: ATORVASTATIN
     Dosage: 20 MILLIGRAM, QD (20 MG TABLETS ONE TO BE TAKEN EACH DAY - NOT PRESCRIBED, INTERACTION WITH POSACONA
     Route: 065
  12. AMITRIPTYLINE [Concomitant]
     Active Substance: AMITRIPTYLINE
     Dosage: 10 MILLIGRAM, PM (10 MG TABLETS TWO TO BE TAKEN AT NIGHT)
     Route: 065
  13. ASPIRIN\ISOSORBIDE MONONITRATE [Concomitant]
     Active Substance: ASPIRIN\ISOSORBIDE MONONITRATE
     Dosage: 60 MILLIGRAM, AM (60MG TABLETS TWO TO BE TAKEN EACH MORNING)
     Route: 065
  14. SENNA [Concomitant]
     Active Substance: SENNA LEAF\SENNOSIDES\SENNOSIDES A AND B
     Dosage: 7.5 MILLIGRAM, PM (7.5 MG TABLETS ONE OR TWO TO BE TAKEN AT NIGHT )
  15. LANSOPRAZOLE [Concomitant]
     Active Substance: LANSOPRAZOLE
     Dosage: 15 MILLIGRAM, AM (15 MG GASTRO-RESISTANT CAPSULES ONE TO BE TAKEN EACH MORNING)
     Route: 065

REACTIONS (1)
  - Haemoptysis [Recovered/Resolved]
